FAERS Safety Report 18221490 (Version 11)
Quarter: 2022Q4

REPORT INFORMATION
  Report Type: Spontaneous
  Country: US (occurrence: US)
  Receive Date: 20200902
  Receipt Date: 20221006
  Transmission Date: 20230112
  Serious: Yes (Other)
  Sender: FDA-Public Use
  Company Number: US-PFIZER INC-2020301341

PATIENT
  Age: 66 Year
  Sex: Male

DRUGS (10)
  1. SUTENT [Suspect]
     Active Substance: SUNITINIB MALATE
     Indication: Renal cancer
     Dosage: 50 MG, DAILY
     Route: 048
  2. SUTENT [Suspect]
     Active Substance: SUNITINIB MALATE
     Dosage: 50 MG, CYCLIC (TAKES THE MEDICATION FOR 2 WEEKS ON AND 1 WEEK OFF)
  3. SUTENT [Suspect]
     Active Substance: SUNITINIB MALATE
     Dosage: 50 MG
     Dates: start: 20200826, end: 202011
  4. SUTENT [Suspect]
     Active Substance: SUNITINIB MALATE
     Dosage: 50 MG
     Dates: start: 20201226
  5. SUTENT [Suspect]
     Active Substance: SUNITINIB MALATE
     Dosage: 37.5 MG
  6. SUTENT [Suspect]
     Active Substance: SUNITINIB MALATE
     Dosage: 50 MG, DAILY
     Route: 048
     Dates: start: 202008
  7. SUTENT [Suspect]
     Active Substance: SUNITINIB MALATE
     Dosage: 37.5 MG, CYCLIC (TAKE ONCE DAILY FOR 14 DAYS AND THEN 7 DAYS OFF)
     Dates: start: 202102
  8. VALSARTAN [Concomitant]
     Active Substance: VALSARTAN
     Indication: Blood pressure abnormal
     Dosage: 80 MG, 2X/DAY (TAKE TWO IN THE EVENING BY MOUTH)
     Route: 048
     Dates: start: 202001
  9. PRAVASTATIN [Concomitant]
     Active Substance: PRAVASTATIN
     Indication: Blood cholesterol abnormal
     Dosage: 20 MG, DAILY IN THE PM BY MOUTH
     Route: 048
  10. TAMSULOSIN [Concomitant]
     Active Substance: TAMSULOSIN
     Indication: Pollakiuria
     Dosage: 0.4 MG, 2X/DAY (TWO DAILY BY MOUTH)
     Route: 048

REACTIONS (11)
  - Epistaxis [Not Recovered/Not Resolved]
  - Disturbance in attention [Unknown]
  - Cardiac disorder [Unknown]
  - Thermal burn [Recovering/Resolving]
  - Ageusia [Recovered/Resolved]
  - Eye swelling [Unknown]
  - Impaired healing [Recovering/Resolving]
  - Injury [Recovering/Resolving]
  - Peripheral swelling [Unknown]
  - Blood pressure increased [Unknown]
  - Pain in extremity [Unknown]

NARRATIVE: CASE EVENT DATE: 20200901
